FAERS Safety Report 4302992-8 (Version None)
Quarter: 2004Q1

REPORT INFORMATION
  Report Type: 
  Country: None (occurrence: None)
  Receive Date: 20040220
  Receipt Date: 20040125
  Transmission Date: 20041129
  Serious: Yes (Hospitalization)
  Sender: FDA-Public Use
  Company Number: A03200400232

PATIENT
  Age: 78 Year
  Sex: Female
  Weight: 60.782 kg

DRUGS (9)
  1. PLAVIX [Suspect]
     Indication: MYOCARDIAL INFARCTION
     Dosage: 75 MG QD - ORAL
     Route: 048
     Dates: start: 20031009
  2. PLAVIX [Suspect]
     Indication: STENT PLACEMENT
     Dosage: 75 MG QD - ORAL
     Route: 048
     Dates: start: 20031009
  3. ACEYLSALICYLIC ACID [Concomitant]
  4. MULTIVITAMIN [Concomitant]
  5. AMLODIPINE BESYLATE [Concomitant]
  6. LANSOPRAZOLE [Concomitant]
  7. ATORVASTATIN [Concomitant]
  8. LEVOTHYROXINE SODIUM [Concomitant]
  9. CALCIUM CARBONATE [Concomitant]

REACTIONS (5)
  - ANOREXIA [None]
  - DIZZINESS [None]
  - FEELING ABNORMAL [None]
  - NERVOUSNESS [None]
  - WEIGHT DECREASED [None]
